FAERS Safety Report 5757792-9 (Version None)
Quarter: 2008Q2

REPORT INFORMATION
  Report Type: 
  Country: None (occurrence: None)
  Receive Date: 20080529
  Receipt Date: 20080513
  Transmission Date: 20081010
  Serious: Yes (Hospitalization)
  Sender: FDA-Public Use
  Company Number: DSA_31884_2008

PATIENT
  Sex: Female

DRUGS (12)
  1. TEMESTA /00273201/ (TEMESTA - LORAZEPAM) (NOT SPECIFIED) [Suspect]
     Indication: DRUG USE FOR UNKNOWN INDICATION
     Dosage: (0.5 MG QD ORAL), (1.5 MG QD ORAL), (0.5 MG QD ORAL)
     Route: 048
     Dates: start: 20080201, end: 20080205
  2. TEMESTA /00273201/ (TEMESTA - LORAZEPAM) (NOT SPECIFIED) [Suspect]
     Indication: DRUG USE FOR UNKNOWN INDICATION
     Dosage: (0.5 MG QD ORAL), (1.5 MG QD ORAL), (0.5 MG QD ORAL)
     Route: 048
     Dates: start: 20080206, end: 20080207
  3. TEMESTA /00273201/ (TEMESTA - LORAZEPAM) (NOT SPECIFIED) [Suspect]
     Indication: DRUG USE FOR UNKNOWN INDICATION
     Dosage: (0.5 MG QD ORAL), (1.5 MG QD ORAL), (0.5 MG QD ORAL)
     Route: 048
     Dates: start: 20080208
  4. ARICEPT [Suspect]
     Indication: DRUG USE FOR UNKNOWN INDICATION
     Dosage: (10 MG QD ORAL)
     Route: 048
  5. DIPIPERON (DIPIPERON - PIPAMPERONE) [Suspect]
     Indication: DRUG USE FOR UNKNOWN INDICATION
     Dosage: (20 MG QD ORAL)
     Route: 048
     Dates: start: 20080206
  6. ENTUMIN (ENTUMIN - CLOTIAPINE) (NOT SPECIFIED) [Suspect]
     Indication: DRUG USE FOR UNKNOWN INDICATION
     Dosage: (10 MG QD ORAL)
     Route: 048
     Dates: start: 20080208
  7. HALDOL [Suspect]
     Indication: DRUG USE FOR UNKNOWN INDICATION
     Dosage: (3 MG QD ORAL), 1 MG QD ORAL), (2 MG QD ORAL)
     Route: 048
     Dates: end: 20080120
  8. HALDOL [Suspect]
     Indication: DRUG USE FOR UNKNOWN INDICATION
     Dosage: (3 MG QD ORAL), 1 MG QD ORAL), (2 MG QD ORAL)
     Route: 048
     Dates: start: 20080121, end: 20080125
  9. HALDOL [Suspect]
     Indication: DRUG USE FOR UNKNOWN INDICATION
     Dosage: (3 MG QD ORAL), 1 MG QD ORAL), (2 MG QD ORAL)
     Route: 048
     Dates: start: 20080205
  10. SEROQUEL [Suspect]
     Indication: DRUG USE FOR UNKNOWN INDICATION
     Dosage: (100 MG QD ORAL), (VARIOUS DOSES: 50-200 MG ORAL)
     Route: 048
     Dates: end: 20080130
  11. SEROQUEL [Suspect]
     Indication: DRUG USE FOR UNKNOWN INDICATION
     Dosage: (100 MG QD ORAL), (VARIOUS DOSES: 50-200 MG ORAL)
     Route: 048
     Dates: start: 20080131
  12. ZUCRAL [Concomitant]

REACTIONS (10)
  - DEHYDRATION [None]
  - DELIRIUM [None]
  - GAMMOPATHY [None]
  - HYPERCALCAEMIA [None]
  - HYPERNATRAEMIA [None]
  - HYPERPARATHYROIDISM [None]
  - HYPERTHYROIDISM [None]
  - HYPERVISCOSITY SYNDROME [None]
  - HYPOKALAEMIA [None]
  - SOMNOLENCE [None]
